FAERS Safety Report 14783211 (Version 1)
Quarter: 2018Q2

REPORT INFORMATION
  Report Type: Spontaneous
  Country: US (occurrence: US)
  Receive Date: 20180420
  Receipt Date: 20180420
  Transmission Date: 20180711
  Serious: Yes (Disabling)
  Sender: FDA-Public Use
  Company Number: US-009507513-1804USA007911

PATIENT
  Age: 88 Year
  Sex: Male

DRUGS (4)
  1. FUROSEMIDE. [Concomitant]
     Active Substance: FUROSEMIDE
  2. BELSOMRA [Suspect]
     Active Substance: SUVOREXANT
     Indication: INSOMNIA
     Dosage: 20 MG/DAILY AT BEDTIME
     Route: 048
     Dates: start: 20180316, end: 2018
  3. BELSOMRA [Suspect]
     Active Substance: SUVOREXANT
     Dosage: 20MG/DAILY AT BEDTIME
     Route: 048
     Dates: start: 20180411
  4. BELSOMRA [Suspect]
     Active Substance: SUVOREXANT
     Dosage: 40MG/DAILY AT BEDTIME
     Route: 048
     Dates: start: 2018, end: 2018

REACTIONS (2)
  - Drug ineffective [Not Recovered/Not Resolved]
  - Overdose [Unknown]

NARRATIVE: CASE EVENT DATE: 2018
